FAERS Safety Report 14728687 (Version 1)
Quarter: 2018Q2

REPORT INFORMATION
  Report Type: Spontaneous
  Country: FR (occurrence: FR)
  Receive Date: 20180406
  Receipt Date: 20180406
  Transmission Date: 20180711
  Serious: Yes (Hospitalization)
  Sender: FDA-Public Use
  Company Number: FR-009507513-1804FRA000813

PATIENT
  Age: 68 Year
  Sex: Male
  Weight: 76 kg

DRUGS (5)
  1. EMEND [Suspect]
     Active Substance: APREPITANT
     Indication: PROPHYLAXIS
     Dosage: 1 DF, UNK
     Route: 048
     Dates: start: 20180201, end: 20180203
  2. DOXORUBICIN HYDROCHLORIDE. [Concomitant]
     Active Substance: DOXORUBICIN HYDROCHLORIDE
     Indication: RHABDOMYOSARCOMA
     Dosage: 38.6 MG
     Route: 041
     Dates: start: 20180201, end: 20180203
  3. HOLOXAN [Interacting]
     Active Substance: IFOSFAMIDE
     Indication: RHABDOMYOSARCOMA
     Dosage: 4825 MG
     Route: 041
     Dates: start: 20180201, end: 20180203
  4. METHYLPREDNISOLONE. [Concomitant]
     Active Substance: METHYLPREDNISOLONE
     Indication: PROPHYLAXIS
     Dosage: 60 MG, UNK
     Route: 048
     Dates: start: 20180201, end: 20180203
  5. ONDANSETRON [Concomitant]
     Active Substance: ONDANSETRON
     Indication: PROPHYLAXIS
     Dosage: 8 MG, UNK
     Route: 048
     Dates: start: 20180201, end: 20180203

REACTIONS (3)
  - Clonus [Recovered/Resolved]
  - Incoherent [Recovered/Resolved]
  - Muscle tone disorder [Recovered/Resolved]

NARRATIVE: CASE EVENT DATE: 20180203
